FAERS Safety Report 4750153-0 (Version None)
Quarter: 2005Q3

REPORT INFORMATION
  Report Type: 
  Country: None (occurrence: None)
  Receive Date: 20050819
  Receipt Date: 20050810
  Transmission Date: 20060218
  Serious: No
  Sender: FDA-Public Use
  Company Number: 2005-07-1209

PATIENT
  Age: 76 Year
  Sex: Female
  Weight: 54.4316 kg

DRUGS (4)
  1. NASONEX [Suspect]
     Indication: COUGH
     Dosage: 1 SPRAY/NARE NASAL SPRAY
     Route: 045
  2. FORADIL [Suspect]
     Indication: EMPHYSEMA
     Dosage: 1 CAP BID
  3. ALBUTEROL [Suspect]
     Dosage: PRN
  4. OXYGEN HS [Concomitant]

REACTIONS (2)
  - DRY EYE [None]
  - VISION BLURRED [None]
